FAERS Safety Report 4277244-5 (Version None)
Quarter: 2004Q1

REPORT INFORMATION
  Report Type: 
  Country: None (occurrence: None)
  Receive Date: 20040120
  Receipt Date: 20040120
  Transmission Date: 20041129
  Serious: Yes (Life-Threatening, Hospitalization)
  Sender: FDA-Public Use
  Company Number: None

PATIENT
  Age: 68 Year
  Sex: Male
  Weight: 98.6 kg

DRUGS (6)
  1. FOSINOPRIL SODIUM [Suspect]
  2. IBUPROFEN [Suspect]
     Indication: ARTHRALGIA
     Dosage: 600 MG,TID,ORAL
     Route: 048
  3. FUROSEMIDE [Suspect]
     Dosage: 20 MG, DAILY, ORAL
     Route: 048
  4. POTASSIUM [Suspect]
     Dosage: 10 MEQ,DAILY,ORAL
     Route: 048
  5. ALLOPURINOL [Concomitant]
  6. TERAZOSIN HCL [Concomitant]

REACTIONS (3)
  - HYPERKALAEMIA [None]
  - HYPOTENSION [None]
  - RENAL FAILURE ACUTE [None]
